FAERS Safety Report 4351375-3 (Version None)
Quarter: 2004Q2

REPORT INFORMATION
  Report Type: 
  Country: None (occurrence: None)
  Receive Date: 20040503
  Receipt Date: 20040315
  Transmission Date: 20050107
  Serious: Yes (Disabling)
  Sender: FDA-Public Use
  Company Number: PHFR2004GB01605

PATIENT
  Age: 60 Year
  Sex: Male
  Weight: 102 kg

DRUGS (4)
  1. DICLOFENAC [Suspect]
     Indication: OSTEOARTHRITIS
     Dosage: 100MG/DAY
     Route: 048
     Dates: start: 19980129, end: 19980206
  2. DICLOFENAC [Suspect]
     Dosage: 75 MG, BID
     Route: 048
     Dates: start: 19980206, end: 19980216
  3. LOCAL ANAESTHETICS [Concomitant]
     Indication: DENTAL TREATMENT
     Dates: start: 19980101
  4. STEROIDS NOS [Concomitant]
     Indication: DENTAL TREATMENT

REACTIONS (7)
  - ABDOMINAL PAIN UPPER [None]
  - HYPOAESTHESIA [None]
  - MOBILITY DECREASED [None]
  - MUSCLE SPASMS [None]
  - MUSCULAR WEAKNESS [None]
  - PAIN IN EXTREMITY [None]
  - PARAESTHESIA [None]
